FAERS Safety Report 9341519 (Version 3)
Quarter: 2013Q3

REPORT INFORMATION
  Report Type: Spontaneous
  Country: US (occurrence: US)
  Receive Date: 20130611
  Receipt Date: 20130801
  Transmission Date: 20140515
  Serious: Yes (Disabling, Other)
  Sender: FDA-Public Use
  Company Number: US-009507513-1306USA003919

PATIENT
  Age: 52 Year
  Sex: Female

DRUGS (16)
  1. JANUVIA [Suspect]
     Indication: DIABETES MELLITUS
     Dosage: 100 MG, QD
     Route: 048
     Dates: start: 20130519, end: 20130527
  2. LISINOPRIL [Concomitant]
  3. METFORMIN [Concomitant]
     Indication: DIABETES MELLITUS
     Dosage: UNK
     Dates: end: 20130513
  4. METFORMIN [Concomitant]
     Dosage: UNK
     Dates: start: 20130517
  5. POTASSIUM (UNSPECIFIED) [Concomitant]
  6. LASIX (FUROSEMIDE SODIUM) [Concomitant]
  7. LOPRESSOR [Concomitant]
  8. LORTAB [Concomitant]
  9. PLAVIX [Concomitant]
  10. PRAVASTATIN SODIUM [Concomitant]
  11. PHENERGAN (PROMETHAZINE HYDROCHLORIDE) [Concomitant]
  12. ZANTAC [Concomitant]
  13. PRAVACOL [Concomitant]
  14. XANAX [Concomitant]
  15. ALEVE [Concomitant]
  16. DEMADEX [Concomitant]

REACTIONS (1)
  - Stevens-Johnson syndrome [Recovering/Resolving]
